FAERS Safety Report 4661304-0 (Version None)
Quarter: 2005Q2

REPORT INFORMATION
  Report Type: 
  Country: None (occurrence: None)
  Receive Date: 20050513
  Receipt Date: 20050503
  Transmission Date: 20051028
  Serious: Yes (Other)
  Sender: FDA-Public Use
  Company Number: GB-JNJFOC-20050501310

PATIENT
  Age: 18 Year
  Sex: Female

DRUGS (3)
  1. SPORANOX [Suspect]
     Indication: BRONCHOPULMONARY ASPERGILLOSIS
     Route: 065
  2. FLUTICASONE PROPIONATE [Interacting]
     Indication: BRONCHOPULMONARY ASPERGILLOSIS
     Route: 055
  3. HYDROCORTISONE [Concomitant]
     Indication: ADRENOCORTICAL INSUFFICIENCY ACUTE
     Route: 065

REACTIONS (7)
  - ADRENAL SUPPRESSION [None]
  - BLOOD CORTICOTROPHIN [None]
  - BLOOD CORTISOL DECREASED [None]
  - CUSHINGOID [None]
  - DRUG INTERACTION [None]
  - FLUID RETENTION [None]
  - WEIGHT INCREASED [None]
